FAERS Safety Report 7545810-7 (Version None)
Quarter: 2011Q2

REPORT INFORMATION
  Report Type: 
  Country: None (occurrence: None)
  Receive Date: 20110614
  Receipt Date: 20110530
  Transmission Date: 20111010
  Serious: Yes (Hospitalization, Other)
  Sender: FDA-Public Use
  Company Number: US-BAYER-2010-007087

PATIENT
  Age: 47 Year
  Sex: Female
  Weight: 58.957 kg

DRUGS (16)
  1. YASMIN [Suspect]
     Indication: ACNE
     Dosage: UNK
     Dates: start: 20070301, end: 20081101
  2. ALBUTEROL SULFATE AUTOHALER [Concomitant]
  3. LOVAZA [Concomitant]
     Indication: VITAMIN SUPPLEMENTATION
  4. ADVAIR DISKUS 100/50 [Concomitant]
     Indication: ASTHMA
     Dosage: UNK UNK, HS
  5. VENTOLIN HFA [Concomitant]
     Indication: MULTIPLE ALLERGIES
     Dosage: UNK UNK, PRN
  6. ZYRTEC [Concomitant]
     Indication: MULTIPLE ALLERGIES
  7. CALCIUM MAGNESIUM [Concomitant]
     Indication: VITAMIN SUPPLEMENTATION
     Dosage: UNK UNK, QD
  8. VERAMYST [Concomitant]
     Indication: ASTHMA
  9. ALEVE (CAPLET) [Concomitant]
     Indication: HEADACHE
     Dosage: UNK UNK, PRN
  10. ONE A DAY [B12,D2,B3,B6,RETINOL,B2,NA+ ASCORB,B1 MONONITR] [Concomitant]
     Indication: VITAMIN SUPPLEMENTATION
  11. OCEAN SPRAY [Concomitant]
  12. IMITREX [Concomitant]
     Indication: MIGRAINE
     Dosage: UNK UNK, PRN
  13. EXCEDRIN (MIGRAINE) [Concomitant]
     Indication: HEADACHE
     Dosage: UNK UNK, PRN
  14. IBUPROFEN [Concomitant]
     Indication: HEADACHE
     Dosage: UNK UNK, PRN
  15. VITAMIN A [Concomitant]
     Indication: VITAMIN SUPPLEMENTATION
  16. POTASSIUM GLUCONATE TAB [Concomitant]
     Indication: SUPPLEMENTATION THERAPY
     Dosage: UNK UNK, Q2MON

REACTIONS (3)
  - INJURY [None]
  - PAIN [None]
  - PULMONARY EMBOLISM [None]
